FAERS Safety Report 7249347-4 (Version None)
Quarter: 2011Q1

REPORT INFORMATION
  Report Type: 
  Country: None (occurrence: None)
  Receive Date: 20110128
  Receipt Date: 20101130
  Transmission Date: 20110831
  Serious: Yes (Other)
  Sender: FDA-Public Use
  Company Number: US-BAYER-201030233NA

PATIENT
  Sex: Female
  Weight: 58.957 kg

DRUGS (19)
  1. YASMIN [Suspect]
     Indication: ACNE
  2. DURADRIN [Concomitant]
     Indication: MIGRAINE
     Dosage: UNK
     Dates: start: 20000301
  3. ASMANEX TWISTHALER [Concomitant]
     Dosage: 220 ?G, UNK
     Route: 048
     Dates: start: 20080610
  4. UNCODEABLE ^UNCLASSIFIABLE^ [Concomitant]
     Indication: PAIN
     Dosage: UNK UNK, PRN
     Route: 048
  5. OCELLA [Suspect]
     Indication: ACNE
  6. SINGULAIR [Concomitant]
     Indication: ASTHMA
     Dosage: 10 MG, UNK
     Route: 048
     Dates: start: 20080609
  7. UNCODEABLE ^UNCLASSIFIABLE^ [Concomitant]
     Indication: PREMENSTRUAL SYNDROME
     Dosage: UNK UNK, PRN
     Route: 048
  8. MAXAIR [Concomitant]
     Indication: ASTHMA
     Dosage: UNK
     Dates: start: 20080601
  9. FLUTICASONE PROPIONATE [Concomitant]
     Dosage: 0.05 %, UNK
     Dates: start: 20080609
  10. YASMIN [Suspect]
     Indication: CONTRACEPTION
     Dosage: UNK UNK, QD
     Route: 048
     Dates: start: 20040301, end: 20080601
  11. ELIDEL [Concomitant]
     Indication: ACNE
     Dosage: UNK
     Dates: start: 20041101
  12. NAPROXEN [Concomitant]
     Dosage: UNK
     Dates: start: 20030501
  13. DOXYCYCLINE [Concomitant]
     Indication: INFECTION
     Dosage: UNK
     Dates: start: 20080801
  14. ALBUTEROL [Concomitant]
     Indication: ASTHMA
     Dosage: UNK
     Dates: start: 20010701
  15. FLUCONAZOLE [Concomitant]
     Dosage: UNK
     Dates: start: 20080901
  16. UNCODEABLE ^UNCLASSIFIABLE^ [Concomitant]
     Indication: MIGRAINE
     Dosage: UNK UNK, PRN
     Route: 048
  17. OCELLA [Suspect]
     Indication: CONTRACEPTION
     Dosage: UNK UNK, QD
     Dates: start: 20080701, end: 20091001
  18. INDOMETHACIN [Concomitant]
     Dosage: UNK
     Dates: start: 20040601
  19. ASCORBIC ACID [Concomitant]
     Dosage: UNK UNK, PRN
     Route: 048

REACTIONS (14)
  - COMPLEX PARTIAL SEIZURES [None]
  - FLUSHING [None]
  - SYNCOPE [None]
  - APHASIA [None]
  - DISSOCIATION [None]
  - DEJA VU [None]
  - CONFUSIONAL STATE [None]
  - FEELING HOT [None]
  - FATIGUE [None]
  - IRRITABILITY [None]
  - DYSPHONIA [None]
  - DEPRESSION [None]
  - MEMORY IMPAIRMENT [None]
  - FEELING ABNORMAL [None]
